FAERS Safety Report 8366274-X (Version None)
Quarter: 2012Q2

REPORT INFORMATION
  Report Type: 
  Country: None (occurrence: None)
  Receive Date: 20120517
  Receipt Date: 20120514
  Transmission Date: 20120825
  Serious: Yes (Life-Threatening, Hospitalization, Other)
  Sender: FDA-Public Use
  Company Number: PHEH2012US010071

PATIENT
  Sex: Female

DRUGS (7)
  1. ASPIRIN [Concomitant]
     Dosage: UNK UKN, UNK
  2. PREVACID [Concomitant]
     Indication: GASTROOESOPHAGEAL REFLUX DISEASE
     Dosage: UNK UKN, UNK
     Route: 048
  3. LOSARTAN POTASSIUM [Concomitant]
     Indication: HYPERTENSION
     Dosage: UNK UKN, UNK
     Route: 048
  4. LOSARTAN POTASSIUM [Concomitant]
     Indication: CARDIAC FAILURE CHRONIC
  5. INSULIN [Concomitant]
     Indication: TYPE 1 DIABETES MELLITUS
     Dosage: UNK UKN, UNK
     Route: 058
  6. SIMVASTATIN [Concomitant]
     Indication: CHRONIC OBSTRUCTIVE PULMONARY DISEASE
     Dosage: UNK UKN, UNK
     Route: 048
  7. MYFORTIC [Suspect]
     Indication: IMMUNOSUPPRESSION
     Dosage: 720 MG, BID
     Route: 048
     Dates: start: 20100108, end: 20120217

REACTIONS (4)
  - PNEUMONIA CYTOMEGALOVIRAL [None]
  - DIARRHOEA [None]
  - SERRATIA INFECTION [None]
  - RESPIRATORY FAILURE [None]
